FAERS Safety Report 21378085 (Version 1)
Quarter: 2022Q3

REPORT INFORMATION
  Report Type: Spontaneous
  Country: US (occurrence: US)
  Receive Date: 20220926
  Receipt Date: 20220926
  Transmission Date: 20221027
  Serious: Yes (Hospitalization, Other)
  Sender: FDA-Public Use
  Company Number: US-AVEO ONCOLOGY-2022-AVEO-US000429

PATIENT

DRUGS (21)
  1. FOTIVDA [Suspect]
     Active Substance: TIVOZANIB HYDROCHLORIDE
     Indication: Renal cell carcinoma
     Dosage: 0.89 MG, DAILY FOR 21 DAYS WITH 7 DAYS OFF (28-DAY CYCLE)
     Route: 048
     Dates: start: 20211218, end: 2022
  2. DEXAMETHASONE [Concomitant]
     Active Substance: DEXAMETHASONE
  3. DUTASTERIDE [Concomitant]
     Active Substance: DUTASTERIDE
  4. FERROUS SULFATE [Concomitant]
     Active Substance: FERROUS SULFATE
  5. FLUDROCORTISONE [Concomitant]
     Active Substance: FLUDROCORTISONE
  6. HYDRALAZINE [Concomitant]
     Active Substance: HYDRALAZINE HYDROCHLORIDE
  7. INSULIN LISPRO [Concomitant]
     Active Substance: INSULIN LISPRO
  8. KLOR-CON M10 [Concomitant]
     Active Substance: POTASSIUM CHLORIDE
  9. LANTUS [Concomitant]
     Active Substance: INSULIN GLARGINE
  10. LOSARTAN [Concomitant]
     Active Substance: LOSARTAN
  11. METOPROLOL [Concomitant]
     Active Substance: METOPROLOL
  12. OMEPRAZOLE [Concomitant]
     Active Substance: OMEPRAZOLE
  13. PRAVASTATIN [Concomitant]
     Active Substance: PRAVASTATIN
  14. ROCALTROL [Concomitant]
     Active Substance: CALCITRIOL
  15. TAMSULOSIN [Concomitant]
     Active Substance: TAMSULOSIN
  16. TORSEMIDE [Concomitant]
     Active Substance: TORSEMIDE
  17. TYLENOL [Concomitant]
     Active Substance: ACETAMINOPHEN
  18. VITAMIN D3 [Concomitant]
     Active Substance: CHOLECALCIFEROL
  19. XARELTO [Concomitant]
     Active Substance: RIVAROXABAN
  20. XGEVA [Concomitant]
     Active Substance: DENOSUMAB
  21. ZAROXOLYN [Concomitant]
     Active Substance: METOLAZONE

REACTIONS (3)
  - Dyspnoea [Unknown]
  - Hypervolaemia [Unknown]
  - Renal impairment [Unknown]
